FAERS Safety Report 8156447 (Version 4)
Quarter: 2013Q3

REPORT INFORMATION
  Report Type: Spontaneous
  Country: US (occurrence: US)
  Receive Date: 20110926
  Receipt Date: 20130917
  Transmission Date: 20140515
  Serious: Yes (Hospitalization)
  Sender: FDA-Public Use
  Company Number: US-GLAXOSMITHKLINE-A0915621A

PATIENT
  Age: 52 Year
  Sex: Female
  Weight: 65.5 kg

DRUGS (2)
  1. AVANDIA [Suspect]
     Dosage: 4MG PER DAY
     Route: 048
     Dates: start: 20060323, end: 20060629
  2. AVANDAMET [Suspect]
     Indication: DIABETES MELLITUS
     Route: 048
     Dates: start: 200612, end: 200710

REACTIONS (3)
  - Cerebrovascular accident [Not Recovered/Not Resolved]
  - Left ventricular hypertrophy [Unknown]
  - Hypertension [Unknown]
